FAERS Safety Report 12635513 (Version 1)
Quarter: 2016Q3

REPORT INFORMATION
  Report Type: Spontaneous
  Country: US (occurrence: US)
  Receive Date: 20160809
  Receipt Date: 20160809
  Transmission Date: 20161109
  Serious: Yes (Other)
  Sender: FDA-Public Use
  Company Number: US-BAYER-2016-152297

PATIENT
  Age: 64 Year
  Weight: 87.75 kg

DRUGS (1)
  1. AFRIN SEVERE CONGESTION [Suspect]
     Active Substance: OXYMETAZOLINE HYDROCHLORIDE

REACTIONS (2)
  - Product use issue [None]
  - Drug dependence [None]
